FAERS Safety Report 25064503 (Version 1)
Quarter: 2025Q1

REPORT INFORMATION
  Report Type: Spontaneous
  Country: IN (occurrence: IN)
  Receive Date: 20250311
  Receipt Date: 20250311
  Transmission Date: 20250409
  Serious: Yes (Other)
  Sender: RANBAXY
  Company Number: IN-SUN PHARMACEUTICAL INDUSTRIES LTD.-2025R1-497357

PATIENT
  Sex: Female

DRUGS (1)
  1. CYPROTERONE\ETHINYL ESTRADIOL [Suspect]
     Active Substance: CYPROTERONE\ETHINYL ESTRADIOL
     Indication: Product used for unknown indication
     Route: 065

REACTIONS (4)
  - Loss of consciousness [Unknown]
  - Nausea [Unknown]
  - Anxiety [Unknown]
  - Headache [Unknown]
